FAERS Safety Report 5273809-2 (Version None)
Quarter: 2007Q1

REPORT INFORMATION
  Report Type: 
  Country: None (occurrence: None)
  Receive Date: 20070323
  Receipt Date: 20070313
  Transmission Date: 20070707
  Serious: Yes (Disabling, Other)
  Sender: FDA-Public Use
  Company Number: PHBS2006JP19748

PATIENT
  Age: 53 Year
  Sex: Female

DRUGS (3)
  1. ZOMETA [Suspect]
     Indication: METASTASES TO BONE
     Dosage: UNK, UNK
     Route: 042
     Dates: start: 20061027, end: 20061222
  2. AREDIA [Suspect]
     Indication: METASTASES TO BONE
     Dosage: 45 MG, UNK
     Route: 042
     Dates: start: 20030801, end: 20061014
  3. TAXOL [Concomitant]
     Indication: METASTASES TO BONE
     Dosage: 80 MG, UNK
     Route: 042
     Dates: start: 20030801

REACTIONS (8)
  - BONE DISORDER [None]
  - DENTAL TREATMENT [None]
  - GINGIVAL PAIN [None]
  - GINGIVAL SWELLING [None]
  - METASTASES TO LIVER [None]
  - MUCOSAL INFLAMMATION [None]
  - OSTEOMYELITIS [None]
  - OSTEONECROSIS [None]
